FAERS Safety Report 8874204 (Version 1)
Quarter: 2012Q4

REPORT INFORMATION
  Report Type: 
  Country: US (occurrence: US)
  Receive Date: 20121031
  Receipt Date: 20121031
  Transmission Date: 20130627
  Serious: Yes (Hospitalization)
  Sender: FDA-Public Use
  Company Number: US-ACTELION-A-US2012-73640

PATIENT
  Age: 62 Year
  Sex: Female

DRUGS (3)
  1. VENTAVIS [Suspect]
     Indication: PULMONARY ARTERIAL HYPERTENSION
     Dosage: UNK
     Route: 055
  2. TRACLEER [Concomitant]
     Dosage: UNK
     Route: 048
  3. ASPIRIN [Concomitant]

REACTIONS (2)
  - Pulmonary oedema [Unknown]
  - Dyspnoea [Unknown]
